FAERS Safety Report 20430587 (Version 1)
Quarter: 2022Q1

REPORT INFORMATION
  Report Type: Report from Study
  Country: FR (occurrence: FR)
  Receive Date: 20220204
  Receipt Date: 20220204
  Transmission Date: 20220423
  Serious: Yes (Hospitalization)
  Sender: FDA-Public Use
  Company Number: FR-SERVIER-S20012071

PATIENT

DRUGS (7)
  1. PEGASPARGASE [Suspect]
     Active Substance: PEGASPARGASE
     Indication: Acute lymphocytic leukaemia
     Dosage: 2700 IU, QD ON D4
     Route: 042
     Dates: start: 20200924, end: 20200924
  2. TN UNSPECIFIED [Concomitant]
     Indication: Acute lymphocytic leukaemia
     Dosage: 1.6 MG, ON D1, D8, D15, D22
     Route: 042
     Dates: start: 20200921, end: 20201012
  3. TN UNSPECIFIED [Concomitant]
     Indication: Acute lymphocytic leukaemia
     Dosage: 15 MG, ON D4, D31
     Route: 037
     Dates: start: 20200924
  4. TN UNSPECIFIED [Concomitant]
     Indication: Acute lymphocytic leukaemia
     Dosage: 15 MG, ON D4, D31
     Route: 037
     Dates: start: 20200924
  5. TN UNSPECIFIED [Concomitant]
     Indication: Acute lymphocytic leukaemia
     Dosage: 15 MG, ON D4, D31
     Route: 037
     Dates: start: 20200924
  6. ADRIAMYCIN [Concomitant]
     Active Substance: DOXORUBICIN HYDROCHLORIDE
     Indication: Acute lymphocytic leukaemia
     Dosage: 33 MG, ON D1, D8, D15, D22
     Route: 042
     Dates: start: 20200921, end: 20201012
  7. TN UNSPECIFIED [Concomitant]
     Indication: Acute lymphocytic leukaemia
     Dosage: 10 MG, ON D1 TO D7, D15 TO D21
     Route: 048
     Dates: start: 20200921, end: 20201011

REACTIONS (2)
  - Escherichia sepsis [Recovered/Resolved]
  - Clostridium difficile colitis [Recovered/Resolved]

NARRATIVE: CASE EVENT DATE: 20201007
